FAERS Safety Report 18180572 (Version 5)
Quarter: 2021Q2

REPORT INFORMATION
  Report Type: Report from Study
  Country: RU (occurrence: RU)
  Receive Date: 20200821
  Receipt Date: 20210429
  Transmission Date: 20210717
  Serious: Yes (Life-Threatening, Hospitalization, Disabling)
  Sender: FDA-Public Use
  Company Number: NVSC2019RU049882

PATIENT
  Age: 64 Year
  Sex: Male
  Weight: 84.2 kg

DRUGS (4)
  1. ALSARTAN [Concomitant]
     Active Substance: LOSARTAN POTASSIUM
     Indication: HYPERTENSION
     Dosage: 300 MG, QD
     Route: 048
     Dates: start: 2011, end: 20200625
  2. VINPOCETINE [Concomitant]
     Active Substance: VINPOCETINE
     Indication: OSTEOCHONDROSIS
     Dosage: 10 MG, BID
     Route: 048
     Dates: start: 2000, end: 20200625
  3. NILOTINIB [Suspect]
     Active Substance: NILOTINIB
     Indication: CHRONIC MYELOID LEUKAEMIA
     Dosage: 400 MG, BID
     Route: 048
     Dates: start: 20130415, end: 20200625
  4. ACETYLSALICYLIC ACID [Concomitant]
     Active Substance: ASPIRIN
     Indication: HYPERTENSION
     Dosage: 100 MG, QD
     Route: 048
     Dates: start: 2011, end: 20200625

REACTIONS (5)
  - Mallory-Weiss syndrome [Recovered/Resolved]
  - Prostate cancer [Recovering/Resolving]
  - Anaemia [Recovered/Resolved]
  - Second primary malignancy [Recovering/Resolving]
  - Myocardial infarction [Recovered/Resolved]

NARRATIVE: CASE EVENT DATE: 20191115
